FAERS Safety Report 5666917-5 (Version None)
Quarter: 2008Q1

REPORT INFORMATION
  Report Type: 
  Country: None (occurrence: None)
  Receive Date: 20080315
  Receipt Date: 20071231
  Transmission Date: 20080703
  Serious: No
  Sender: FDA-Public Use
  Company Number: US-ABBOTT-08P-163-0432481-00

PATIENT
  Sex: Male
  Weight: 109 kg

DRUGS (4)
  1. HUMIRA [Suspect]
     Indication: PSORIASIS
     Route: 058
     Dates: start: 20071221
  2. BYETTA [Concomitant]
     Indication: DIABETES MELLITUS
     Route: 050
  3. HYPERTENSION MEDICATION [Concomitant]
     Indication: HYPERTENSION
  4. CHOLESTEROL MEDICATION [Concomitant]
     Indication: BLOOD CHOLESTEROL

REACTIONS (1)
  - RHINORRHOEA [None]
